FAERS Safety Report 13911159 (Version 1)
Quarter: 2017Q3

REPORT INFORMATION
  Report Type: Report from Study
  Country: US (occurrence: US)
  Receive Date: 20170828
  Receipt Date: 20170828
  Transmission Date: 20171127
  Serious: No
  Sender: FDA-Public Use
  Company Number: PHEH2017US027295

PATIENT
  Age: 73 Year
  Sex: Female
  Weight: 100.2 kg

DRUGS (1)
  1. COSENTYX [Suspect]
     Active Substance: SECUKINUMAB
     Indication: PSORIASIS
     Dosage: 150 MG, Q2W
     Route: 058
     Dates: start: 20170620

REACTIONS (2)
  - Inappropriate schedule of drug administration [Unknown]
  - Onychomycosis [Unknown]

NARRATIVE: CASE EVENT DATE: 201707
